FAERS Safety Report 5622671-4 (Version None)
Quarter: 2008Q1

REPORT INFORMATION
  Report Type: 
  Country: None (occurrence: None)
  Receive Date: 20080208
  Receipt Date: 20080208
  Transmission Date: 20080703
  Serious: Yes (Other)
  Sender: FDA-Public Use
  Company Number: None

PATIENT
  Sex: Male

DRUGS (1)
  1. TDAP PPD [Suspect]
     Indication: ROUTINE HEALTH MAINTENANCE
     Dates: start: 20080125, end: 20080125

REACTIONS (3)
  - MYALGIA [None]
  - PYREXIA [None]
  - TUBERCULIN TEST POSITIVE [None]
